FAERS Safety Report 6360277-2 (Version None)
Quarter: 2009Q3

REPORT INFORMATION
  Report Type: 
  Country: None (occurrence: None)
  Receive Date: 20090917
  Receipt Date: 20090916
  Transmission Date: 20100115
  Serious: Yes (Hospitalization)
  Sender: FDA-Public Use
  Company Number: US-ROXANE LABORATORIES, INC.-2009-RO-00943RO

PATIENT
  Sex: Female

DRUGS (4)
  1. PREDNISONE [Suspect]
     Indication: ANAPHYLACTIC REACTION
     Dosage: 60 MG
     Route: 048
  2. ALLEGRA [Concomitant]
     Indication: MULTIPLE ALLERGIES
  3. VIAFLO [Concomitant]
     Indication: ASTHMA
  4. PREVACID [Concomitant]
     Indication: GASTROOESOPHAGEAL REFLUX DISEASE

REACTIONS (1)
  - DRUG INEFFECTIVE [None]
